FAERS Safety Report 7560683-4 (Version None)
Quarter: 2011Q2

REPORT INFORMATION
  Report Type: 
  Country: None (occurrence: None)
  Receive Date: 20110617
  Receipt Date: 20110617
  Transmission Date: 20111010
  Serious: Yes (Other)
  Sender: FDA-Public Use
  Company Number: None

PATIENT
  Age: 85 Year
  Sex: Female
  Weight: 79.3795 kg

DRUGS (2)
  1. FLUTICASONE PROPIONATE [Suspect]
     Indication: HYPERSENSITIVITY
     Dosage: 2 SPRAYS DAILY NOSE
     Route: 045
     Dates: start: 20110521
  2. FLUTICASONE PROPIONATE [Suspect]
     Indication: RESPIRATORY DISORDER
     Dosage: 2 SPRAYS DAILY NOSE
     Route: 045
     Dates: start: 20110521

REACTIONS (5)
  - RHINALGIA [None]
  - NASAL CONGESTION [None]
  - ERYTHEMA [None]
  - OROPHARYNGEAL PAIN [None]
  - MALAISE [None]
